FAERS Safety Report 4525964-7 (Version None)
Quarter: 2004Q4

REPORT INFORMATION
  Report Type: 
  Country: None (occurrence: None)
  Receive Date: 20041213
  Receipt Date: 20041213
  Transmission Date: 20050328
  Serious: Yes (Other)
  Sender: FDA-Public Use
  Company Number: None

PATIENT
  Age: 44 Year
  Sex: Female
  Weight: 67.1324 kg

DRUGS (1)
  1. GABAPENTIN [Suspect]
     Indication: COMPLEX PARTIAL SEIZURES
     Dosage: 400MG  5X/D  ORAL
     Route: 048
     Dates: start: 20041101, end: 20041209

REACTIONS (4)
  - CONDITION AGGRAVATED [None]
  - CONVULSION [None]
  - DRUG EFFECT DECREASED [None]
  - PHARMACEUTICAL PRODUCT COMPLAINT [None]
